FAERS Safety Report 13452286 (Version 1)
Quarter: 2017Q2

REPORT INFORMATION
  Report Type: Spontaneous
  Country: US (occurrence: US)
  Receive Date: 20170418
  Receipt Date: 20170418
  Transmission Date: 20170830
  Serious: Yes (Other)
  Sender: FDA-Public Use
  Company Number: US-MYLANLABS-2017M1023470

PATIENT

DRUGS (4)
  1. VANDETANIB. [Suspect]
     Active Substance: VANDETANIB
     Indication: GLIOBLASTOMA MULTIFORME
     Dosage: COMPLETED 12 CYCLES WITH TEMOZOLOMIDE. LATER, CONTINUED AS MONOTHERAPY
     Route: 065
  2. TEMOZOLOMIDE. [Suspect]
     Active Substance: TEMOZOLOMIDE
     Dosage: RESTARTED ALONG WITH CARBOXYAMIDOTRIAZOLE OROTATE
     Route: 065
     Dates: start: 201303
  3. ANTINEOPLASTIC AGENTS [Suspect]
     Active Substance: UNSPECIFIED INGREDIENT
     Indication: GLIOBLASTOMA MULTIFORME
     Route: 065
     Dates: start: 201303
  4. TEMOZOLOMIDE. [Suspect]
     Active Substance: TEMOZOLOMIDE
     Indication: GLIOBLASTOMA MULTIFORME
     Dosage: COMPLETED 12 CYCLES; LATER, RESTARTED ALONG WITH CARBOXYAMIDOTRIAZOLE OROTATE
     Route: 065
     Dates: end: 201110

REACTIONS (1)
  - Drug resistance [Unknown]
